FAERS Safety Report 7446877-7 (Version None)
Quarter: 2011Q2

REPORT INFORMATION
  Report Type: 
  Country: None (occurrence: None)
  Receive Date: 20110429
  Receipt Date: 20110420
  Transmission Date: 20111010
  Serious: Yes (Other)
  Sender: FDA-Public Use
  Company Number: US-US-EMD SERONO, INC.-7055361

PATIENT
  Sex: Female

DRUGS (1)
  1. REBIF [Suspect]
     Indication: PRODUCT USED FOR UNKNOWN INDICATION
     Route: 058
     Dates: start: 20110205

REACTIONS (5)
  - INJECTION SITE ERYTHEMA [None]
  - SPLENOMEGALY [None]
  - HEPATOMEGALY [None]
  - CHOLELITHIASIS [None]
  - HEPATIC STEATOSIS [None]
